FAERS Safety Report 5025030-0 (Version None)
Quarter: 2006Q2

REPORT INFORMATION
  Report Type: 
  Country: None (occurrence: None)
  Receive Date: 20060608
  Receipt Date: 20060608
  Transmission Date: 20061013
  Serious: Yes (Life-Threatening, Hospitalization, Other)
  Sender: FDA-Public Use
  Company Number: None

PATIENT
  Age: 80 Year
  Sex: Male
  Weight: 68.1 kg

DRUGS (2)
  1. PLAVIX [Suspect]
     Indication: DERMATITIS
     Dates: start: 20060522
  2. CARDURA [Concomitant]

REACTIONS (2)
  - DERMATITIS EXFOLIATIVE [None]
  - SKIN REACTION [None]
